FAERS Safety Report 8070706-4 (Version None)
Quarter: 2012Q1

REPORT INFORMATION
  Report Type: 
  Country: None (occurrence: None)
  Receive Date: 20120125
  Receipt Date: 20120123
  Transmission Date: 20120608
  Serious: Yes (Hospitalization)
  Sender: FDA-Public Use
  Company Number: PHEH2012US000926

PATIENT
  Sex: Male
  Weight: 56.236 kg

DRUGS (1)
  1. ZOMETA [Suspect]
     Indication: METASTASES TO BONE
     Dosage: 3 MG, EVERY 3 WEEKS
     Route: 042
     Dates: start: 20110404

REACTIONS (2)
  - LUNG CANCER METASTATIC [None]
  - PAIN [None]
